FAERS Safety Report 8498504-8 (Version None)
Quarter: 2012Q3

REPORT INFORMATION
  Report Type: 
  Country: None (occurrence: None)
  Receive Date: 20120709
  Receipt Date: 20120625
  Transmission Date: 20120928
  Serious: No
  Sender: FDA-Public Use
  Company Number: US-AMGEN-USASP2012039321

PATIENT
  Age: 51 Year
  Sex: Female

DRUGS (2)
  1. ENBREL [Suspect]
     Indication: PSORIATIC ARTHROPATHY
     Dosage: 50 MG, QWK
     Dates: start: 20120518
  2. ENBREL [Suspect]
     Indication: PSORIASIS

REACTIONS (3)
  - INJECTION SITE REACTION [None]
  - INJECTION SITE RASH [None]
  - PSORIASIS [None]
